FAERS Safety Report 15619416 (Version 1)
Quarter: 2018Q4

REPORT INFORMATION
  Report Type: Spontaneous
  Country: IT (occurrence: IT)
  Receive Date: 20181115
  Receipt Date: 20181115
  Transmission Date: 20190205
  Serious: Yes (Other)
  Sender: FDA-Public Use
  Company Number: IT-ACCORD-092434

PATIENT
  Age: 63 Year
  Sex: Female

DRUGS (5)
  1. METHOTREXATE. [Suspect]
     Active Substance: METHOTREXATE
     Indication: PSORIATIC ARTHROPATHY
     Route: 058
     Dates: start: 20160427, end: 20180719
  2. LANSOPRAZOLE. [Concomitant]
     Active Substance: LANSOPRAZOLE
  3. FOLIC ACID. [Concomitant]
     Active Substance: FOLIC ACID
  4. DIBASE [Concomitant]
     Active Substance: CHOLECALCIFEROL
  5. CIPRALEX [Concomitant]
     Active Substance: ESCITALOPRAM OXALATE

REACTIONS (1)
  - Urinary bladder polyp [Not Recovered/Not Resolved]

NARRATIVE: CASE EVENT DATE: 20180719
